FAERS Safety Report 9737123 (Version 1)
Quarter: 2013Q4

REPORT INFORMATION
  Report Type: Report from Study
  Country: ID (occurrence: ID)
  Receive Date: 20131206
  Receipt Date: 20131206
  Transmission Date: 20140711
  Serious: Yes (Hospitalization)
  Sender: FDA-Public Use
  Company Number: ID-ROCHE-1310525

PATIENT
  Age: 43 Year
  Sex: Male
  Weight: 87 kg

DRUGS (1)
  1. XENICAL [Suspect]
     Indication: OBESITY
     Route: 048
     Dates: end: 20131122

REACTIONS (1)
  - Gastroenteritis bacterial [Recovered/Resolved]
